FAERS Safety Report 5161036-9 (Version None)
Quarter: 2006Q4

REPORT INFORMATION
  Report Type: 
  Country: None (occurrence: None)
  Receive Date: 20061121
  Receipt Date: 20061113
  Transmission Date: 20070319
  Serious: Yes (Death)
  Sender: FDA-Public Use
  Company Number: 2006140026

PATIENT
  Age: 50 Year
  Sex: Male

DRUGS (1)
  1. FRAGMIN [Suspect]
     Indication: PROPHYLAXIS
     Dosage: 2500 I.U. (2500 I.U., 1 IN 1 D), SUBCUTANEOUS
     Route: 058
     Dates: start: 20061020, end: 20061025

REACTIONS (2)
  - MYOCARDIAL INFARCTION [None]
  - SUDDEN DEATH [None]
